FAERS Safety Report 5579174-5 (Version None)
Quarter: 2008Q1

REPORT INFORMATION
  Report Type: 
  Country: None (occurrence: None)
  Receive Date: 20080102
  Receipt Date: 20071227
  Transmission Date: 20080703
  Serious: Yes (Other)
  Sender: FDA-Public Use
  Company Number: A0700581A

PATIENT
  Age: 32 Year
  Sex: Female

DRUGS (21)
  1. TYKERB [Suspect]
     Indication: BREAST CANCER
     Dosage: 1250MG PER DAY
     Route: 048
     Dates: start: 20071209
  2. LUPRON DEPOT [Concomitant]
  3. METHADONE HCL [Concomitant]
  4. WARFARIN SODIUM [Concomitant]
  5. METOCLOPRAMIDE [Concomitant]
  6. GABAPENTIN [Concomitant]
  7. AMITRIPTYLINE HCL [Concomitant]
  8. SIMVASTATIN [Concomitant]
  9. PRILOSEC [Concomitant]
  10. OXYCODONE HCL [Concomitant]
  11. CLONIDINE [Concomitant]
  12. LEVOTHYROXINE SODIUM [Concomitant]
  13. POTASSIUM CHLORIDE [Concomitant]
  14. CHLORHEXIDINE GLUCONATE [Concomitant]
  15. ASCORBIC ACID [Concomitant]
  16. EXCEDRIN (MIGRAINE) [Concomitant]
  17. GARLIC [Concomitant]
  18. RED YEAST RICE [Concomitant]
  19. FISH OIL [Concomitant]
  20. PROMETHAZINE [Concomitant]
  21. DTO [Concomitant]

REACTIONS (4)
  - DIARRHOEA [None]
  - DYSPHONIA [None]
  - PALMAR-PLANTAR ERYTHRODYSAESTHESIA SYNDROME [None]
  - PHARYNGOLARYNGEAL PAIN [None]
